FAERS Safety Report 10714994 (Version 1)
Quarter: 2015Q1

REPORT INFORMATION
  Report Type: Spontaneous
  Country: US (occurrence: US)
  Receive Date: 20150115
  Receipt Date: 20150115
  Transmission Date: 20150721
  Serious: No
  Sender: FDA-Public Use
  Company Number: US-GLAXOSMITHKLINE-US2015GSK005164

PATIENT
  Sex: Female
  Weight: 78 kg

DRUGS (4)
  1. ANTIBIOTIC (DRUG NAME UNKNOWN) [Concomitant]
     Active Substance: UNSPECIFIED INGREDIENT
  2. VENTOLIN HFA [Suspect]
     Active Substance: ALBUTEROL SULFATE
     Indication: PRODUCT USED FOR UNKNOWN INDICATION
     Dosage: UNK, U
  3. ACETAMINOPHEN + PHENYLEPHRINE HYDROCHLORIDE + CHLORPHENIRAMINE MALEATE [Concomitant]
  4. LYRICA [Concomitant]
     Active Substance: PREGABALIN

REACTIONS (1)
  - Drug ineffective [Unknown]
